FAERS Safety Report 5616487-2 (Version None)
Quarter: 2008Q1

REPORT INFORMATION
  Report Type: 
  Country: None (occurrence: None)
  Receive Date: 20080204
  Receipt Date: 20080122
  Transmission Date: 20080703
  Serious: Yes (Other)
  Sender: FDA-Public Use
  Company Number: 100#03#2008-00447

PATIENT
  Age: 66 Year
  Sex: Female

DRUGS (5)
  1. CARBOPLATIN [Suspect]
     Indication: OVARIAN CANCER
     Dosage: 550 MG INTRAVENOUS (NOT OTHERWISE SPECIFIED)
     Route: 042
     Dates: start: 20080103, end: 20080103
  2. CHLORPHENAMINE (CHLORPHENAMINE) [Concomitant]
  3. DEXAMETHASONE TAB [Concomitant]
  4. GRANISETRON  HCL [Concomitant]
  5. TAXOL [Concomitant]

REACTIONS (2)
  - BLINDNESS TRANSIENT [None]
  - VISION BLURRED [None]
